FAERS Safety Report 9162507 (Version 1)
Quarter: 2013Q1

REPORT INFORMATION
  Report Type: Spontaneous
  Country: US (occurrence: US)
  Receive Date: 20130314
  Receipt Date: 20130314
  Transmission Date: 20140127
  Serious: Yes (Hospitalization, Other)
  Sender: FDA-Public Use
  Company Number: US-PFIZER INC-2013083511

PATIENT
  Age: 52 Year
  Sex: Female
  Weight: 72.56 kg

DRUGS (5)
  1. PRISTIQ [Suspect]
     Indication: DEPRESSION
     Dosage: 100 MG, UNK
     Dates: end: 201204
  2. CLONAZEPAM [Suspect]
     Dosage: UNK
  3. LITHIUM [Suspect]
     Indication: WITHDRAWAL SYNDROME
     Dosage: UNK
  4. TOPAMAX [Concomitant]
     Indication: MIGRAINE
     Dosage: UNK
  5. TOPAMAX [Concomitant]
     Indication: AFFECTIVE DISORDER

REACTIONS (20)
  - Suicidal ideation [Unknown]
  - Mental disorder [Unknown]
  - Mania [Unknown]
  - Bipolar disorder [Unknown]
  - Drug dependence [Unknown]
  - Fear of death [Unknown]
  - Withdrawal syndrome [Unknown]
  - Thyroid disorder [Unknown]
  - Thyroid function test abnormal [Not Recovered/Not Resolved]
  - Alopecia [Not Recovered/Not Resolved]
  - Nervousness [Unknown]
  - Pain [Unknown]
  - Dyskinesia [Unknown]
  - Nightmare [Unknown]
  - Depression [Unknown]
  - Stress [Unknown]
  - Insomnia [Unknown]
  - Cold sweat [Unknown]
  - Paraesthesia [Unknown]
  - Feeling hot [Unknown]
